FAERS Safety Report 8159628-8 (Version None)
Quarter: 2012Q1

REPORT INFORMATION
  Report Type: 
  Country: None (occurrence: None)
  Receive Date: 20120216
  Receipt Date: 20120208
  Transmission Date: 20120608
  Serious: Yes (Hospitalization)
  Sender: FDA-Public Use
  Company Number: 2012SP000675

PATIENT
  Age: 46 Year
  Sex: Female
  Weight: 57 kg

DRUGS (19)
  1. POSACONAZOLE [Suspect]
     Dosage: 300, 400 MG, BID, QID, IV
     Route: 042
     Dates: start: 20111224, end: 20120115
  2. POSACONAZOLE [Suspect]
     Dosage: 300, 400 MG, BID, QID, IV
     Route: 042
     Dates: start: 20111219, end: 20111223
  3. MAGNESIUM ELEMENTAL [Concomitant]
  4. HYDROMORPHONE HCL [Concomitant]
  5. BETAMETHASONE [Concomitant]
  6. AMLODIPINE [Concomitant]
  7. POTASSIUM CHLORIDE [Concomitant]
  8. SODIUM CHLORIDE [Concomitant]
  9. HEPARIN LOCK-FLUSH [Concomitant]
  10. URSODIOL [Concomitant]
  11. POTASSIUM CHLORIDE [Concomitant]
  12. MAGNESIUM SULFATE [Concomitant]
  13. PANTOPRAZOLE [Concomitant]
  14. VALACYCLOVIR [Concomitant]
  15. PROCHLORPERAZINE [Concomitant]
  16. CYCLOSPORINE [Suspect]
  17. LEVOTHYROXINE SODIUM [Concomitant]
  18. ZOPICLONE [Concomitant]
  19. LIDOCAINE HCL VISCOUS [Concomitant]

REACTIONS (12)
  - STREPTOCOCCAL BACTERAEMIA [None]
  - RASH [None]
  - PARAESTHESIA [None]
  - CHROMOSOME ANALYSIS ABNORMAL [None]
  - METASTASIS [None]
  - PYREXIA [None]
  - LYMPHOPROLIFERATIVE DISORDER [None]
  - LYMPHADENOPATHY [None]
  - DIABETES MELLITUS [None]
  - HYPOKALAEMIA [None]
  - APHTHOUS STOMATITIS [None]
  - HYPOMAGNESAEMIA [None]
